FAERS Safety Report 5164390-7 (Version None)
Quarter: 2006Q4

REPORT INFORMATION
  Report Type: 
  Country: None (occurrence: None)
  Receive Date: 20061129
  Receipt Date: 20061129
  Transmission Date: 20070319
  Serious: Yes (Life-Threatening)
  Sender: FDA-Public Use
  Company Number: None

PATIENT
  Age: 52 Year
  Sex: Male
  Weight: 88.9957 kg

DRUGS (1)
  1. EZETIMIBE/SIMVASTATIN 10 MG/80 MG [Suspect]
     Indication: HYPERCHOLESTEROLAEMIA
     Dosage: 10 MG/80 MG 1/2 TABLET QHS PO
     Route: 048
     Dates: start: 20050901, end: 20061012

REACTIONS (3)
  - GAIT DISTURBANCE [None]
  - MUSCULAR WEAKNESS [None]
  - MYALGIA [None]
